FAERS Safety Report 7206710-5 (Version None)
Quarter: 2011Q1

REPORT INFORMATION
  Report Type: 
  Country: None (occurrence: None)
  Receive Date: 20110103
  Receipt Date: 20101222
  Transmission Date: 20110831
  Serious: Yes (Life-Threatening, Hospitalization)
  Sender: FDA-Public Use
  Company Number: FR-SANOFI-AVENTIS-2010SA071951

PATIENT
  Age: 79 Year
  Sex: Male
  Weight: 77 kg

DRUGS (9)
  1. OMEPRAZOLE [Concomitant]
     Route: 048
  2. KARDEGIC [Concomitant]
     Indication: TACHYARRHYTHMIA
     Route: 048
  3. LASIX [Concomitant]
     Route: 048
  4. NEBIVOLOL [Concomitant]
     Route: 048
  5. LEVOTHYROX [Concomitant]
     Indication: HYPOTHYROIDISM
     Route: 048
  6. ENALAPRIL MALEATE [Concomitant]
     Route: 048
  7. MULTAQ [Suspect]
     Indication: ARRHYTHMIA
     Route: 048
     Dates: start: 20101029, end: 20101108
  8. PERINDOPRIL [Concomitant]
     Route: 048
  9. MINISINTROM [Concomitant]
     Indication: TACHYARRHYTHMIA
     Route: 048

REACTIONS (3)
  - BRADYCARDIA [None]
  - CARDIAC FAILURE [None]
  - DYSPNOEA [None]
